FAERS Safety Report 19108636 (Version 1)
Quarter: 2021Q2

REPORT INFORMATION
  Report Type: Spontaneous
  Country: GB (occurrence: GB)
  Receive Date: 20210408
  Receipt Date: 20210408
  Transmission Date: 20210717
  Serious: Yes (Life-Threatening)
  Sender: FDA-Public Use
  Company Number: GB-TEVA-2021-GB-1896635

PATIENT
  Age: 63 Year
  Sex: Male
  Weight: 102 kg

DRUGS (31)
  1. AMOXICILLIN. [Concomitant]
     Active Substance: AMOXICILLIN
     Dosage: 3 DOSAGE FORMS DAILY;
     Dates: start: 20210112, end: 20210117
  2. DULOXETINE. [Concomitant]
     Active Substance: DULOXETINE
     Dosage: 1 D
     Dates: start: 20180329
  3. OMEPRAZOLE. [Concomitant]
     Active Substance: OMEPRAZOLE
     Dosage: 1 DOSAGE FORMS DAILY;
     Dates: start: 20180329
  4. PREDNISOLONE. [Concomitant]
     Active Substance: PREDNISOLONE
     Dosage: 6 DOSAGE FORMS DAILY;
     Dates: start: 20210112, end: 20210117
  5. COTRIMOXAZOLE [Concomitant]
     Active Substance: SULFAMETHOXAZOLE\TRIMETHOPRIM
     Dates: start: 20180329
  6. PREGABALIN. [Concomitant]
     Active Substance: PREGABALIN
     Dosage: 2 DOSAGE FORMS DAILY;
     Dates: start: 20200914
  7. AMLODIPINE [Concomitant]
     Active Substance: AMLODIPINE BESYLATE
     Dosage: 1 DOSAGE FORMS DAILY;
     Dates: start: 20201116
  8. DIGOXIN. [Concomitant]
     Active Substance: DIGOXIN
     Dosage: 1 DOSAGE FORMS DAILY;
     Dates: start: 20180329
  9. LANTUS [Concomitant]
     Active Substance: INSULIN GLARGINE
     Dosage: 10 IU (INTERNATIONAL UNIT) DAILY; AT 18:00
     Dates: start: 20210209
  10. ZAPAIN [Concomitant]
     Active Substance: ACETAMINOPHEN\CODEINE PHOSPHATE
     Dosage: ONE TO TWO TABLETS TO BE TAKEN EVERY FOUR TO SI...
     Dates: start: 20201007
  11. ATORVASTATIN [Concomitant]
     Active Substance: ATORVASTATIN
     Dosage: 1 DOSAGE FORMS DAILY;
     Dates: start: 20180329
  12. BUMETANIDE. [Concomitant]
     Active Substance: BUMETANIDE
     Dosage: 2 DOSAGE FORMS DAILY; AT 08.00 AND 14.00
     Dates: start: 20210205
  13. FUROSEMIDE. [Concomitant]
     Active Substance: FUROSEMIDE
     Dosage: 2 DOSAGE FORMS DAILY;
     Dates: start: 20180329, end: 20210205
  14. QUETIAPINE. [Concomitant]
     Active Substance: QUETIAPINE
     Dosage: 1 DOSAGE FORMS DAILY; AT NIGHT
     Dates: start: 20180329
  15. TRIMBOW [Concomitant]
     Active Substance: BECLOMETHASONE DIPROPIONATE\FORMOTEROL FUMARATE\GLYCOPYRROLATE
     Dosage: 4 DOSAGE FORMS DAILY;
     Dates: start: 20200727
  16. AMIODARONE [Concomitant]
     Active Substance: AMIODARONE
     Dosage: 3 DOSAGE FORMS DAILY;
     Dates: start: 20210205
  17. NOVORAPID [Concomitant]
     Active Substance: INSULIN ASPART
     Dosage: 18 IU (INTERNATIONAL UNIT) DAILY; AT 8:00, 13:00 AND 17:00
     Dates: start: 20210209
  18. NYSTATIN. [Concomitant]
     Active Substance: NYSTATIN
     Dosage: USE AS DIRECTED
     Dates: start: 20210112, end: 20210119
  19. PHENOXYMETHYLPENICILLIN [Concomitant]
     Active Substance: PENICILLIN V
     Dosage: 4 DOSAGE FORMS DAILY;
     Dates: start: 20180329
  20. VITAMIN B COMPOUND [Concomitant]
     Dosage: 2 DOSAGE FORMS DAILY; AS DIRECTED BY HOSP...
     Dates: start: 20180329
  21. RAMIPRIL. [Suspect]
     Active Substance: RAMIPRIL
     Dosage: 1.25MG
     Route: 065
  22. APIXABAN [Concomitant]
     Active Substance: APIXABAN
     Dosage: 2 DOSAGE FORMS DAILY;
     Dates: start: 20210205
  23. DOXAZOSIN [Concomitant]
     Active Substance: DOXAZOSIN MESYLATE
     Dosage: 2 DOSAGE FORMS DAILY;
     Dates: start: 20180329, end: 20210205
  24. METFORMIN [Concomitant]
     Active Substance: METFORMIN HYDROCHLORIDE
     Dosage: 3 DOSAGE FORMS DAILY; TAKE TWO TABLETS WITH BREAKFAST ONE WITH EVENIN...
     Dates: start: 20180807, end: 20210205
  25. THIAMINE. [Concomitant]
     Active Substance: THIAMINE
     Dosage: 1 DOSAGE FORMS DAILY;
     Dates: start: 20180329
  26. VENTOLIN [Concomitant]
     Active Substance: ALBUTEROL SULFATE
     Dosage: 2 DOSAGE FORMS
     Route: 055
     Dates: start: 20180329
  27. ASPIRIN. [Concomitant]
     Active Substance: ASPIRIN
     Dosage: 1 DOSAGE FORMS DAILY;
     Dates: start: 20180329
  28. BISOPROLOL [Concomitant]
     Active Substance: BISOPROLOL
     Dosage: 1 DOSAGE FORMS DAILY;
     Dates: start: 20180329
  29. DABIGATRAN ETEXILATE [Concomitant]
     Active Substance: DABIGATRAN ETEXILATE
     Dosage: 2 DOSAGE FORMS DAILY;
     Dates: start: 20180329, end: 20210205
  30. EPLERENONE. [Concomitant]
     Active Substance: EPLERENONE
     Dosage: .5 DOSAGE FORMS DAILY; AT 8:00
     Dates: start: 20210209
  31. IPRATROPIUM BROMIDE. [Concomitant]
     Active Substance: IPRATROPIUM BROMIDE
     Dosage: 4 DOSAGE FORMS DAILY; FOUR TIMES DAILY
     Dates: start: 20180329

REACTIONS (1)
  - Anaphylactic reaction [Recovered/Resolved]
